FAERS Safety Report 20132143 (Version 3)
Quarter: 2021Q4

REPORT INFORMATION
  Report Type: Spontaneous
  Country: US (occurrence: US)
  Receive Date: 20211130
  Receipt Date: 20211221
  Transmission Date: 20220303
  Serious: Yes (Other)
  Sender: FDA-Public Use
  Company Number: US-SA-SAC20211124000610

PATIENT
  Age: 77 Year
  Sex: Male

DRUGS (17)
  1. DUPIXENT [Suspect]
     Active Substance: DUPILUMAB
     Indication: Asthma
     Dosage: 300 MG, QOW
     Route: 058
     Dates: start: 202109
  2. NUCALA [Concomitant]
     Active Substance: MEPOLIZUMAB
     Dosage: UNK
  3. ISOSORBIDE MONONITRATE [Concomitant]
     Active Substance: ISOSORBIDE MONONITRATE
     Dosage: UNK
  4. LASIX [Concomitant]
     Active Substance: FUROSEMIDE
     Dosage: UNK
  5. SYMBICORT [Concomitant]
     Active Substance: BUDESONIDE\FORMOTEROL FUMARATE DIHYDRATE
     Dosage: UNK
  6. PROAIR DIGIHALER [Concomitant]
     Active Substance: ALBUTEROL SULFATE
     Dosage: UNK
  7. NITROGLYCERIN [Concomitant]
     Active Substance: NITROGLYCERIN
     Dosage: UNK
     Route: 060
  8. MONTELUKAST SODIUM [Concomitant]
     Active Substance: MONTELUKAST SODIUM
     Dosage: UNK
  9. LATANOPROST [Concomitant]
     Active Substance: LATANOPROST
     Dosage: UNK
  10. FLONASE ALLERGY RELIEF [Concomitant]
     Active Substance: FLUTICASONE PROPIONATE
     Dosage: UNK
  11. ELIQUIS [Concomitant]
     Active Substance: APIXABAN
     Dosage: UNK
  12. DALIRESP [Concomitant]
     Active Substance: ROFLUMILAST
     Dosage: UNK
  13. CAPECITABINE [Concomitant]
     Active Substance: CAPECITABINE
     Dosage: UNK
  14. ASPIRIN [Concomitant]
     Active Substance: ASPIRIN
     Dosage: UNK
  15. ALPHAGAN P [Concomitant]
     Active Substance: BRIMONIDINE TARTRATE
     Dosage: UNK
  16. ALBUTEROL SULFATE [Concomitant]
     Active Substance: ALBUTEROL SULFATE
     Dosage: UNK
  17. PREDNISONE [Concomitant]
     Active Substance: PREDNISONE
     Dosage: UNK

REACTIONS (2)
  - Haematochezia [Unknown]
  - Transfusion [Unknown]

NARRATIVE: CASE EVENT DATE: 20211101
